FAERS Safety Report 11712507 (Version 1)
Quarter: 2015Q4

REPORT INFORMATION
  Report Type: Spontaneous
  Country: US (occurrence: US)
  Receive Date: 20151104
  Receipt Date: 20151104
  Transmission Date: 20160304
  Serious: No
  Sender: FDA-Public Use
  Company Number: US-ELI_LILLY_AND_COMPANY-US201106000350

PATIENT
  Sex: Female
  Weight: 63.5 kg

DRUGS (11)
  1. DILTIAZEM [Concomitant]
     Active Substance: DILTIAZEM
     Dosage: 240 MG, QD
     Route: 048
  2. EFFEXOR [Concomitant]
     Active Substance: VENLAFAXINE HYDROCHLORIDE
     Dosage: 75 MG, QD
     Route: 048
  3. PROMETRIUM                         /00376202/ [Concomitant]
     Dosage: 100 MG, QD
     Route: 048
  4. VICODIN [Concomitant]
     Active Substance: ACETAMINOPHEN\HYDROCODONE BITARTRATE
     Indication: PAIN
     Dosage: 1 DF, QD
     Route: 048
  5. AMBIEN [Concomitant]
     Active Substance: ZOLPIDEM TARTRATE
     Dosage: 10 MG, QD
     Route: 048
  6. PLAQUENIL [Concomitant]
     Active Substance: HYDROXYCHLOROQUINE SULFATE
     Dosage: 200 MG, BID
     Route: 048
  7. VIVELLE-DOT [Concomitant]
     Active Substance: ESTRADIOL
     Dosage: 0.03 MG, WEEKLY (1/W)
  8. BENADRILINA [Concomitant]
     Dosage: 25 MG, PRN
     Route: 048
  9. FORTEO [Suspect]
     Active Substance: TERIPARATIDE
     Indication: OSTEOPOROSIS
     Dosage: 20 UG, UNKNOWN
  10. NEXIUM [Concomitant]
     Active Substance: ESOMEPRAZOLE MAGNESIUM
     Indication: GASTROOESOPHAGEAL REFLUX DISEASE
     Dosage: 40 MG, BID
     Route: 048
  11. ALEVE [Concomitant]
     Active Substance: NAPROXEN SODIUM
     Dosage: 220 MG, TID

REACTIONS (9)
  - Myalgia [Unknown]
  - Weight increased [Unknown]
  - Intentional product misuse [Unknown]
  - Osteoarthritis [Not Recovered/Not Resolved]
  - Adverse event [Unknown]
  - Arthralgia [Unknown]
  - Joint range of motion decreased [Unknown]
  - Fatigue [Unknown]
  - Blood pressure increased [Unknown]
